FAERS Safety Report 6784271-2 (Version None)
Quarter: 2010Q2

REPORT INFORMATION
  Report Type: 
  Country: None (occurrence: None)
  Receive Date: 20100617
  Receipt Date: 20100607
  Transmission Date: 20101027
  Serious: Yes (Hospitalization, Other)
  Sender: FDA-Public Use
  Company Number: AXC-2010-000158

PATIENT
  Age: 78 Year
  Sex: Male

DRUGS (1)
  1. MESALAMINE [Suspect]
     Indication: COLITIS ULCERATIVE
     Dosage: 1500 MG QD  2000 MG, QD

REACTIONS (12)
  - ABDOMINAL PAIN [None]
  - ANAL ABSCESS [None]
  - ANAL FISTULA [None]
  - DEFAECATION URGENCY [None]
  - ESCHERICHIA INFECTION [None]
  - LOCAL SWELLING [None]
  - NECROTISING FASCIITIS [None]
  - OEDEMA GENITAL [None]
  - POST PROCEDURAL COMPLICATION [None]
  - PROCTALGIA [None]
  - PYREXIA [None]
  - SCROTAL PAIN [None]
